FAERS Safety Report 9350787 (Version 1)
Quarter: 2013Q2

REPORT INFORMATION
  Report Type: Spontaneous
  Country: US (occurrence: US)
  Receive Date: 20130617
  Receipt Date: 20130617
  Transmission Date: 20140414
  Serious: Yes (Hospitalization)
  Sender: FDA-Public Use
  Company Number: US-AMGEN-USASP2013041662

PATIENT
  Age: 54 Year
  Sex: Female

DRUGS (4)
  1. ENBREL [Suspect]
     Indication: RHEUMATOID ARTHRITIS
     Dosage: UNK UNK, QWK
     Route: 065
     Dates: start: 20120701
  2. ARAVA [Suspect]
     Dosage: UNK UNK, DAILY
     Dates: start: 2012, end: 201304
  3. LAMISIL /00992601/ [Suspect]
     Indication: FUNGAL INFECTION
     Dosage: UNK
  4. FLUCONAZOLE [Suspect]
     Indication: FUNGAL INFECTION
     Dosage: UNK

REACTIONS (16)
  - Rash [Recovered/Resolved]
  - Heart rate increased [Recovered/Resolved]
  - Hypertension [Recovered/Resolved]
  - Hypotension [Recovered/Resolved]
  - Body temperature increased [Recovered/Resolved]
  - Musculoskeletal pain [Recovered/Resolved]
  - Pain in extremity [Recovered/Resolved]
  - Arthralgia [Recovered/Resolved]
  - Drug hypersensitivity [Recovered/Resolved]
  - Arthritis [Not Recovered/Not Resolved]
  - Local swelling [Not Recovered/Not Resolved]
  - Productive cough [Not Recovered/Not Resolved]
  - Sputum discoloured [Not Recovered/Not Resolved]
  - Fungal infection [Recovered/Resolved]
  - Lymphadenopathy [Recovered/Resolved]
  - Drug hypersensitivity [None]
